FAERS Safety Report 5371468-1 (Version None)
Quarter: 2007Q2

REPORT INFORMATION
  Report Type: 
  Country: None (occurrence: None)
  Receive Date: 20070622
  Receipt Date: 20070613
  Transmission Date: 20071010
  Serious: Yes (Other)
  Sender: FDA-Public Use
  Company Number: 2007S1000256

PATIENT
  Age: 31 Year
  Sex: Female
  Weight: 63.6 kg

DRUGS (4)
  1. CUBICIN [Suspect]
     Indication: STAPHYLOCOCCAL ABSCESS
     Dosage: 4 MG/KG; Q24H; IV
     Route: 042
     Dates: start: 20070530, end: 20070612
  2. PHENTERMINE HYDROCHLORIDE [Concomitant]
  3. CLINDAMYCIN HCL [Concomitant]
  4. VANCOMYCIN HCL [Concomitant]

REACTIONS (10)
  - ABSCESS [None]
  - BACTERIAL INFECTION [None]
  - BONE MARROW FAILURE [None]
  - CATHETER RELATED INFECTION [None]
  - CHILLS [None]
  - CULTURE POSITIVE [None]
  - ENTEROCOCCAL INFECTION [None]
  - MUSCULAR WEAKNESS [None]
  - PYREXIA [None]
  - SYSTEMIC LUPUS ERYTHEMATOSUS [None]
